FAERS Safety Report 7332264-9 (Version None)
Quarter: 2011Q1

REPORT INFORMATION
  Report Type: 
  Country: None (occurrence: None)
  Receive Date: 20110304
  Receipt Date: 20110225
  Transmission Date: 20110831
  Serious: Yes (Death)
  Sender: FDA-Public Use
  Company Number: US-ROCHE-758903

PATIENT
  Sex: Male
  Weight: 76.7 kg

DRUGS (28)
  1. ACETAMINOPHEN [Concomitant]
     Dosage: DRUG NAME REPORTED AS TYLENOL ES.
     Dates: start: 20011109
  2. PRAVACHOL [Concomitant]
  3. OMEPRAZOLE [Concomitant]
     Dates: start: 20060125
  4. MIRALAX [Concomitant]
     Dosage: TDD: 2 CAPSULES OD
     Dates: start: 20061207
  5. NIFEREX FORTE [Concomitant]
     Dates: start: 20050824
  6. TOCILIZUMAB [Suspect]
     Indication: RHEUMATOID ARTHRITIS
     Dosage: PATIENT WAS PREVIOUSLY ENROLLED IN STUDY WA18063.
     Route: 042
  7. ASPIRIN [Concomitant]
     Dates: start: 19980904
  8. AIRTAL [Concomitant]
     Dosage: DRUG NAME REPORTED AS AICLOFENAC
     Dates: start: 20041202
  9. ASTELIN [Concomitant]
  10. OCUVITE LUTEIN [Concomitant]
     Dosage: TDD: 4 TAB GD
     Dates: start: 20070410
  11. FUROSEMIDE [Concomitant]
     Dates: start: 19980901
  12. AMIODARONE [Concomitant]
  13. LASIX [Concomitant]
     Dates: start: 20091128
  14. METHOTREXATE [Concomitant]
     Dates: start: 20020129
  15. METHOTREXATE [Concomitant]
     Dosage: TDD: 15 MG/WEEK
     Dates: start: 20070618, end: 20110209
  16. ATENOLOL [Concomitant]
     Dates: start: 20020601
  17. DICLOFENAC [Concomitant]
     Dosage: TDD REPORTED AS 150
     Dates: start: 20041202
  18. AMBIEN [Concomitant]
  19. PREDNISONE [Concomitant]
     Dates: start: 19980904
  20. ACETAMINOPHEN/OXYCODONE [Concomitant]
     Dosage: TDD: PRN 2 TABS
     Dates: start: 20101019
  21. VITAMIN D [Concomitant]
     Dosage: TDD: 50000IU
     Dates: start: 20080201
  22. DIGOXIN [Concomitant]
     Dates: start: 20060901
  23. CALCITRIOL [Concomitant]
  24. PERCOCET-5 [Concomitant]
     Dosage: DRUG NAME PERCOCET 5/325
     Dates: start: 20101019
  25. TOCILIZUMAB [Suspect]
     Dosage: FORM: INFUSION.
     Route: 042
     Dates: start: 20050809
  26. ASPIRIN [Concomitant]
     Dates: start: 20090521
  27. FOLIC ACID [Concomitant]
     Dates: start: 20021227
  28. DARVOCET-N 100 [Concomitant]
     Dosage: TDD: 650/100 MG

REACTIONS (2)
  - PANCYTOPENIA [None]
  - PNEUMONIA [None]
